FAERS Safety Report 4436158-8 (Version None)
Quarter: 2004Q3

REPORT INFORMATION
  Report Type: 
  Country: None (occurrence: None)
  Receive Date: 20040826
  Receipt Date: 20040814
  Transmission Date: 20050211
  Serious: Yes (Other)
  Sender: FDA-Public Use
  Company Number: B0342480A

PATIENT
  Age: 42 Year
  Sex: Female

DRUGS (6)
  1. NICODERM CQ [Suspect]
     Indication: SMOKING CESSATION THERAPY
     Dosage: 21 MG/ PER DAY/ TRANSDERMAL
     Route: 062
     Dates: start: 20040715, end: 20040723
  2. FLUCLOXACILLIN SODIUM [Concomitant]
  3. FUSIDIC ACID [Concomitant]
  4. TERBINAFINE HCL [Concomitant]
  5. DICLOFENAC [Concomitant]
  6. NORETHISTERONE [Concomitant]

REACTIONS (6)
  - APPLICATION SITE DERMATITIS [None]
  - APPLICATION SITE OEDEMA [None]
  - GENERALISED OEDEMA [None]
  - HYPERSENSITIVITY [None]
  - OEDEMA PERIPHERAL [None]
  - SKIN INFECTION [None]
